FAERS Safety Report 19987270 (Version 2)
Quarter: 2021Q4

REPORT INFORMATION
  Report Type: Spontaneous
  Country: CA (occurrence: CA)
  Receive Date: 20211022
  Receipt Date: 20211027
  Transmission Date: 20220303
  Serious: Yes (Other)
  Sender: FDA-Public Use
  Company Number: CA-PFIZER INC-202101392032

PATIENT
  Age: 25 Year
  Sex: Male

DRUGS (5)
  1. METHOTREXATE SODIUM [Suspect]
     Active Substance: METHOTREXATE SODIUM
     Dosage: 25 MG WEEKLY
     Route: 048
  2. CALCIUM [Concomitant]
     Active Substance: CALCIUM
     Dosage: UNK
  3. FOLIC ACID [Concomitant]
     Active Substance: FOLIC ACID
     Dosage: UNK
  4. PENTASA [Concomitant]
     Active Substance: MESALAMINE
     Dosage: UNK
  5. STELARA [Concomitant]
     Active Substance: USTEKINUMAB
     Dosage: UNK, EVERY 4 WEEKS

REACTIONS (5)
  - Rectal haemorrhage [Not Recovered/Not Resolved]
  - Diarrhoea haemorrhagic [Unknown]
  - Haematochezia [Unknown]
  - Condition aggravated [Unknown]
  - Muscle spasms [Unknown]
